FAERS Safety Report 4492063-2 (Version None)
Quarter: 2004Q4

REPORT INFORMATION
  Report Type: 
  Country: None (occurrence: None)
  Receive Date: 20041101
  Receipt Date: 20041020
  Transmission Date: 20050328
  Serious: Yes (Hospitalization, Other)
  Sender: FDA-Public Use
  Company Number: HQWYE336427SEP04

PATIENT
  Age: 48 Year
  Sex: Male

DRUGS (25)
  1. RAPAMUNE [Suspect]
     Indication: PROPHYLAXIS AGAINST TRANSPLANT REJECTION
     Dosage: 3 MG 1X PER 1 DAY  , ORAL
     Route: 048
     Dates: start: 20001115
  2. DISOTHIAZIDE (HYDROCHLOROTHIAZIDE,) [Suspect]
     Dates: start: 20040401
  3. CYCLOSPORINE [Concomitant]
  4. PREDNISOLONE [Concomitant]
  5. MYCOPHENOLATE MOFETIL (MYCOPHENOLATE MOFETIL) [Concomitant]
  6. ASPIRIN [Concomitant]
  7. . [Concomitant]
  8. . [Concomitant]
  9. IRBESARTAN (IRBESARTAN) [Concomitant]
  10. PANTOPRAZOLE (PANTOPRAZOLE) [Concomitant]
  11. HYDRALAZINE HCL TAB [Concomitant]
  12. ATORVASTATIN (ATORVASTATIN) [Concomitant]
  13. CYPROHEPTADINE HCL [Concomitant]
  14. WAFARIN (WARFARIN) [Concomitant]
  15. ALENDRONATE SODIUM (ALENDORNATE SODIUM) [Concomitant]
  16. SPAN-K  (POTASSIUM CHLORIDE) [Concomitant]
  17. TRAMADOL HCL [Concomitant]
  18. DIAZEPAM [Concomitant]
  19. COLOXYL WITH SENNA (DOCUSATE SODIUM/SENNOSIDE A+B) [Concomitant]
  20. GTN (GLYCERYL TRINITRATE) [Concomitant]
  21. GLICLAZIDE (GLICLAZIDE) [Concomitant]
  22. ACETAMINOPHEN [Concomitant]
  23. MIRTAZAPINE [Concomitant]
  24. ZYBAN [Concomitant]
  25. FRUEMIDE (FUROSEMIDE) [Concomitant]

REACTIONS (2)
  - HAEMOGLOBIN DECREASED [None]
  - HYPERGLYCAEMIA [None]
